FAERS Safety Report 23400827 (Version 4)
Quarter: 2024Q2

REPORT INFORMATION
  Report Type: Report from Study
  Country: CA (occurrence: CA)
  Receive Date: 20240115
  Receipt Date: 20240425
  Transmission Date: 20240716
  Serious: Yes (Hospitalization, Other)
  Sender: FDA-Public Use
  Company Number: CA-JNJFOC-20231237668

PATIENT
  Age: 74 Year
  Sex: Female
  Weight: 58 kg

DRUGS (5)
  1. STELARA [Suspect]
     Active Substance: USTEKINUMAB
     Indication: Crohn^s disease
     Route: 040
  2. STELARA [Suspect]
     Active Substance: USTEKINUMAB
     Route: 058
     Dates: start: 20141014
  3. STELARA [Suspect]
     Active Substance: USTEKINUMAB
     Route: 058
     Dates: start: 20220714
  4. STELARA [Suspect]
     Active Substance: USTEKINUMAB
     Route: 058
     Dates: start: 20221014
  5. PREDNISONE [Concomitant]
     Active Substance: PREDNISONE
     Route: 048

REACTIONS (3)
  - Intestinal obstruction [Recovering/Resolving]
  - COVID-19 [Recovered/Resolved]
  - Off label use [Unknown]

NARRATIVE: CASE EVENT DATE: 20231017
